FAERS Safety Report 10032721 (Version 1)
Quarter: 2014Q1

REPORT INFORMATION
  Report Type: Spontaneous
  Country: CN (occurrence: CN)
  Receive Date: 20140324
  Receipt Date: 20140324
  Transmission Date: 20141002
  Serious: Yes (Other)
  Sender: FDA-Public Use
  Company Number: CN-GLAXOSMITHKLINE-B0978900A

PATIENT
  Age: 46 Year
  Sex: Male

DRUGS (1)
  1. HEPTODIN [Suspect]
     Indication: HEPATITIS B
     Route: 048
     Dates: start: 2012

REACTIONS (2)
  - Hepatic cirrhosis [Unknown]
  - Blood bilirubin increased [Unknown]
